FAERS Safety Report 12177315 (Version 2)
Quarter: 2016Q1

REPORT INFORMATION
  Report Type: Spontaneous
  Country: US (occurrence: US)
  Receive Date: 20160314
  Receipt Date: 20160324
  Transmission Date: 20160526
  Serious: Yes (Other)
  Sender: FDA-Public Use
  Company Number: US-TEVA-642397USA

PATIENT
  Age: 56 Year
  Sex: Female
  Weight: 72.64 kg

DRUGS (2)
  1. JANUMAT [Concomitant]
     Indication: GLUCOSE TOLERANCE IMPAIRED
  2. ZECUITY [Suspect]
     Active Substance: SUMATRIPTAN SUCCINATE
     Dosage: 6.5 MG OVER 4 HOURS
     Route: 062
     Dates: start: 20160305

REACTIONS (5)
  - Sunburn [Recovered/Resolved]
  - Application site burn [Recovered/Resolved]
  - Application site urticaria [Recovered/Resolved]
  - Incorrect drug administration duration [Recovered/Resolved]
  - Application site pain [Recovered/Resolved]

NARRATIVE: CASE EVENT DATE: 20160305
